FAERS Safety Report 7352956-5 (Version None)
Quarter: 2011Q1

REPORT INFORMATION
  Report Type: 
  Country: None (occurrence: None)
  Receive Date: 20110315
  Receipt Date: 20110311
  Transmission Date: 20110831
  Serious: Yes (Other)
  Sender: FDA-Public Use
  Company Number: AU-ROCHE-764967

PATIENT
  Sex: Female

DRUGS (4)
  1. METHOTREXATE [Concomitant]
  2. ACTEMRA [Suspect]
     Indication: RHEUMATOID ARTHRITIS
     Dosage: INFUSION NUMBER 3 ON 11 MAR 2011
     Route: 042
     Dates: start: 20110101
  3. PLAQUENIL [Concomitant]
  4. SALAZOPYRIN [Concomitant]

REACTIONS (2)
  - DIZZINESS [None]
  - OROPHARYNGEAL PAIN [None]
